FAERS Safety Report 9107380 (Version 2)
Quarter: 2013Q1

REPORT INFORMATION
  Report Type: Spontaneous
  Country: US (occurrence: US)
  Receive Date: 20130221
  Receipt Date: 20130315
  Transmission Date: 20140127
  Serious: Yes (Other)
  Sender: FDA-Public Use
  Company Number: US-JNJFOC-20130204476

PATIENT
  Age: 45 Year
  Sex: Male

DRUGS (3)
  1. RISPERDAL CONSTA [Suspect]
     Indication: PRODUCT USED FOR UNKNOWN INDICATION
     Route: 030
     Dates: start: 20121213
  2. RISPERDAL [Suspect]
     Indication: PRODUCT USED FOR UNKNOWN INDICATION
     Route: 048
  3. UNKNOWN MEDICATION [Concomitant]
     Route: 065

REACTIONS (3)
  - Hallucination [Unknown]
  - Hypersensitivity [Recovered/Resolved]
  - Dizziness [Unknown]
